FAERS Safety Report 10530187 (Version 1)
Quarter: 2014Q4

REPORT INFORMATION
  Report Type: Spontaneous
  Country: ME (occurrence: None)
  Receive Date: 20141020
  Receipt Date: 20141020
  Transmission Date: 20150528
  Serious: Yes (Other)
  Sender: FDA-Public Use
  Company Number: None

PATIENT
  Age: 32 Year
  Sex: Female
  Weight: 88 kg

DRUGS (1)
  1. NUVARING [Suspect]
     Active Substance: ETHINYL ESTRADIOL\ETONOGESTREL
     Indication: CONTRACEPTION
     Dosage: 1 MONTHLY VAGINAL
     Route: 067

REACTIONS (6)
  - Pain [None]
  - Dyspareunia [None]
  - Vaginal haemorrhage [None]
  - Cervix haemorrhage uterine [None]
  - Gardnerella infection [None]
  - Migraine [None]

NARRATIVE: CASE EVENT DATE: 20141014
